FAERS Safety Report 9797577 (Version 1)
Quarter: 2014Q1

REPORT INFORMATION
  Report Type: Report from Study
  Country: US (occurrence: US)
  Receive Date: 20140106
  Receipt Date: 20140106
  Transmission Date: 20141002
  Serious: Yes (Hospitalization)
  Sender: FDA-Public Use
  Company Number: US-ROCHE-1314306

PATIENT
  Sex: Male

DRUGS (25)
  1. LUCENTIS [Suspect]
     Indication: AGE-RELATED MACULAR DEGENERATION
     Dosage: LEFT EYE
     Route: 050
     Dates: start: 20120426
  2. LUCENTIS [Suspect]
     Dosage: LEFT EYE
     Route: 050
     Dates: start: 20120923
  3. LUCENTIS [Suspect]
     Dosage: LEFT EYE
     Route: 050
     Dates: start: 20120726
  4. LUCENTIS [Suspect]
     Dosage: LEFT EYE
     Route: 050
     Dates: start: 20110812
  5. LUCENTIS [Suspect]
     Dosage: LEFT EYE
     Route: 050
     Dates: start: 20120803
  6. LUCENTIS [Suspect]
     Dosage: LEFT EYE
     Route: 050
     Dates: start: 20111205
  7. LUCENTIS [Suspect]
     Dosage: LEFT EYE
     Route: 050
     Dates: start: 20120126
  8. LUCENTIS [Suspect]
     Dosage: LEFT EYE
     Route: 050
     Dates: start: 20110922
  9. LUCENTIS [Suspect]
     Dosage: LEFT EYE
     Route: 050
     Dates: start: 20110623
  10. LUCENTIS [Suspect]
     Dosage: LEFT EYE
     Route: 050
     Dates: start: 20111103
  11. OFLOXACIN [Concomitant]
     Route: 047
  12. XALATAN [Concomitant]
     Route: 047
  13. ALPHAGAN P [Concomitant]
     Route: 047
  14. VIGAMOX [Concomitant]
     Dosage: 1 DROP QID, LEFT EYE (OS)
     Route: 047
  15. ZYMAR [Concomitant]
     Dosage: 1 DROP LEFT EYE (OS)
     Route: 047
  16. PLAVIX [Concomitant]
  17. ALTACE [Concomitant]
     Route: 065
  18. ASA [Concomitant]
     Route: 065
  19. ZOCOR [Concomitant]
     Route: 065
  20. BESIVANCE [Concomitant]
     Dosage: 1 DROP QID LEFT EYE (OS)
     Route: 047
  21. METFORMIN [Concomitant]
     Route: 065
  22. TROPICAMIDE [Concomitant]
     Dosage: OU
     Route: 047
  23. NEO-SYNEPHRINE [Concomitant]
     Dosage: OU
     Route: 047
  24. PRADAXA [Concomitant]
     Route: 065
  25. BETADINE [Concomitant]
     Route: 065

REACTIONS (2)
  - Cardiac disorder [Unknown]
  - Type 2 diabetes mellitus [Unknown]
